FAERS Safety Report 4649901-X (Version None)
Quarter: 2005Q2

REPORT INFORMATION
  Report Type: 
  Country: None (occurrence: None)
  Receive Date: 20050502
  Receipt Date: 20050222
  Transmission Date: 20051028
  Serious: Yes (Death, Hospitalization, Other)
  Sender: FDA-Public Use
  Company Number: US-MERCK-0502USA02789

PATIENT
  Age: 75 Year
  Sex: Female

DRUGS (6)
  1. VIOXX [Suspect]
     Indication: PAIN
     Route: 048
  2. VIOXX [Suspect]
     Route: 048
     Dates: end: 20040214
  3. EVISTA [Concomitant]
     Indication: OSTEOPOROSIS
     Route: 048
     Dates: start: 20010104
  4. VASOTEC [Concomitant]
     Indication: BLOOD PRESSURE
     Route: 048
  5. HYDRODIURIL [Concomitant]
     Indication: BLOOD PRESSURE
     Route: 048
  6. LOMOTIL [Concomitant]
     Route: 065

REACTIONS (29)
  - ABDOMINAL PAIN [None]
  - AORTIC DISORDER [None]
  - ARTHRALGIA [None]
  - ASPIRATION [None]
  - BASAL CELL CARCINOMA [None]
  - BLOOD PRESSURE INADEQUATELY CONTROLLED [None]
  - CARDIAC FAILURE CONGESTIVE [None]
  - CEREBRAL ATHEROSCLEROSIS [None]
  - CEREBRAL HAEMORRHAGE [None]
  - COMA [None]
  - DIARRHOEA [None]
  - DYSPHASIA [None]
  - DYSPNOEA [None]
  - GASTROINTESTINAL HAEMORRHAGE [None]
  - HAEMORRHAGIC STROKE [None]
  - HYPERTENSION [None]
  - HYPOTENSION [None]
  - ISCHAEMIC CARDIOMYOPATHY [None]
  - LOSS OF CONSCIOUSNESS [None]
  - MYOCARDIAL INFARCTION [None]
  - PAIN IN EXTREMITY [None]
  - POLLAKIURIA [None]
  - RASH [None]
  - SINUS DISORDER [None]
  - SPINAL COLUMN STENOSIS [None]
  - SUBARACHNOID HAEMORRHAGE [None]
  - UPPER GASTROINTESTINAL HAEMORRHAGE [None]
  - VISION BLURRED [None]
  - VOMITING [None]
